FAERS Safety Report 4776588-8 (Version None)
Quarter: 2005Q3

REPORT INFORMATION
  Report Type: 
  Country: None (occurrence: None)
  Receive Date: 20050915
  Receipt Date: 20050902
  Transmission Date: 20060218
  Serious: Yes (Death)
  Sender: FDA-Public Use
  Company Number: 2005115526

PATIENT
  Age: 58 Year
  Sex: Female

DRUGS (4)
  1. VFEND [Suspect]
     Indication: FUNGAEMIA
     Dosage: SEE IMAGE
     Route: 042
     Dates: start: 20050714, end: 20050714
  2. VFEND [Suspect]
     Indication: FUNGAEMIA
     Dosage: SEE IMAGE
     Route: 042
     Dates: start: 20050715, end: 20050721
  3. VFEND [Suspect]
     Indication: FUNGAEMIA
     Dosage: SEE IMAGE
     Route: 042
     Dates: start: 20050722, end: 20050730
  4. VFEND [Suspect]
     Indication: FUNGAEMIA
     Dosage: SEE IMAGE
     Route: 042
     Dates: start: 20050731

REACTIONS (1)
  - BLOOD BILIRUBIN INCREASED [None]
